FAERS Safety Report 11654571 (Version 1)
Quarter: 2015Q4

REPORT INFORMATION
  Report Type: Spontaneous
  Country: US (occurrence: None)
  Receive Date: 20151022
  Receipt Date: 20151022
  Transmission Date: 20160304
  Serious: No
  Sender: FDA-Public Use
  Company Number: None

PATIENT
  Age: 28 Year
  Sex: Female
  Weight: 103.87 kg

DRUGS (3)
  1. LORTAB [Concomitant]
     Active Substance: ACETAMINOPHEN\HYDROCODONE BITARTRATE
  2. OXAPROZIN. [Concomitant]
     Active Substance: OXAPROZIN
  3. MIRENA [Suspect]
     Active Substance: LEVONORGESTREL

REACTIONS (13)
  - Migraine [None]
  - Weight decreased [None]
  - Medical device complication [None]
  - Fatigue [None]
  - Nausea [None]
  - Hyperhidrosis [None]
  - Dizziness postural [None]
  - Feeling of body temperature change [None]
  - Gastroenteritis salmonella [None]
  - Dysgeusia [None]
  - Myalgia [None]
  - Hair growth abnormal [None]
  - Dry mouth [None]

NARRATIVE: CASE EVENT DATE: 20151013
